FAERS Safety Report 12352037 (Version 1)
Quarter: 2016Q2

REPORT INFORMATION
  Report Type: Spontaneous
  Country: US (occurrence: US)
  Receive Date: 20160510
  Receipt Date: 20160510
  Transmission Date: 20160815
  Serious: No
  Sender: FDA-Public Use
  Company Number: GXBR2016US001329

PATIENT
  Sex: Female

DRUGS (1)
  1. GLATOPA [Suspect]
     Active Substance: GLATIRAMER ACETATE
     Indication: PRODUCT USED FOR UNKNOWN INDICATION
     Dosage: 20 MG/ML, UNK
     Route: 065

REACTIONS (5)
  - Headache [Unknown]
  - Injection site reaction [Unknown]
  - Multiple sclerosis [Unknown]
  - Multiple sclerosis relapse [Unknown]
  - Fatigue [Unknown]
